FAERS Safety Report 17293420 (Version 1)
Quarter: 2020Q1

REPORT INFORMATION
  Report Type: Spontaneous
  Country: US (occurrence: US)
  Receive Date: 20200120
  Receipt Date: 20200120
  Transmission Date: 20200409
  Serious: Yes (Hospitalization)
  Sender: FDA-Public Use
  Company Number: None

PATIENT
  Age: 73 Year
  Sex: Female
  Weight: 52.65 kg

DRUGS (6)
  1. ROVUASTATIN [Concomitant]
  2. HYDROXIZINE HCL [Concomitant]
  3. SYNTHROID [Concomitant]
     Active Substance: LEVOTHYROXINE SODIUM
  4. GLYBIZIDE [Concomitant]
  5. OZEMPIC [Suspect]
     Active Substance: SEMAGLUTIDE
     Indication: DIABETES MELLITUS
     Dosage: ?          QUANTITY:1 INJECTION(S);OTHER ROUTE:INJECTION?
     Dates: start: 20190920, end: 20200118
  6. LASARTIN [Concomitant]

REACTIONS (7)
  - Insomnia [None]
  - Nausea [None]
  - Herpes zoster [None]
  - Eructation [None]
  - Weight decreased [None]
  - Abdominal pain upper [None]
  - Constipation [None]

NARRATIVE: CASE EVENT DATE: 20190930
